FAERS Safety Report 4910557-X (Version None)
Quarter: 2006Q1

REPORT INFORMATION
  Report Type: 
  Country: None (occurrence: None)
  Receive Date: 20060214
  Receipt Date: 20060203
  Transmission Date: 20060701
  Serious: Yes (Other)
  Sender: FDA-Public Use
  Company Number: US-ROCHE-435246

PATIENT
  Age: 72 Year
  Sex: Female
  Weight: 70.3 kg

DRUGS (8)
  1. BONIVA [Suspect]
     Indication: OSTEOPOROSIS
     Route: 048
     Dates: start: 20051003, end: 20051103
  2. BONIVA [Suspect]
     Route: 048
     Dates: start: 20051203
  3. TRIAMTERENE/CYCLOTHIAZIDE [Concomitant]
     Indication: HYPERTENSION
     Route: 048
  4. CLONIDINE [Concomitant]
     Indication: HYPERTENSION
     Route: 048
  5. LABETALOL HCL [Concomitant]
     Indication: HYPERTENSION
     Route: 048
  6. TRICOR [Concomitant]
     Indication: HYPERCHOLESTEROLAEMIA
  7. ZETIA [Concomitant]
     Indication: HYPERCHOLESTEROLAEMIA
  8. CALCIUM GLUCONATE [Concomitant]
     Indication: OSTEOPOROSIS

REACTIONS (1)
  - PARATHYROID GLAND ENLARGEMENT [None]
